FAERS Safety Report 5128313-9 (Version None)
Quarter: 2006Q4

REPORT INFORMATION
  Report Type: 
  Country: None (occurrence: None)
  Receive Date: 20061011
  Receipt Date: 20060922
  Transmission Date: 20070319
  Serious: Yes (Hospitalization)
  Sender: FDA-Public Use
  Company Number: US200605000641

PATIENT
  Age: 41 Year
  Sex: Female
  Weight: 84.8 kg

DRUGS (1)
  1. ZYPREXA [Suspect]
     Dates: start: 20031101, end: 20040101

REACTIONS (2)
  - DIABETES MELLITUS [None]
  - MYOCARDIAL INFARCTION [None]
